FAERS Safety Report 4537285-7 (Version None)
Quarter: 2004Q4

REPORT INFORMATION
  Report Type: 
  Country: None (occurrence: None)
  Receive Date: 20041221
  Receipt Date: 20041112
  Transmission Date: 20050328
  Serious: Yes (Hospitalization)
  Sender: FDA-Public Use
  Company Number: 211220

PATIENT
  Sex: 0

DRUGS (3)
  1. AVASTIN [Suspect]
     Indication: GASTRIC CANCER
     Dosage: INTRAVENOUS
     Route: 042
  2. CISPLATIN [Concomitant]
  3. IRINOTECAN HCL [Concomitant]

REACTIONS (1)
  - GASTROINTESTINAL PERFORATION [None]
